FAERS Safety Report 5473427-7 (Version None)
Quarter: 2007Q3

REPORT INFORMATION
  Report Type: 
  Country: None (occurrence: None)
  Receive Date: 20070824
  Receipt Date: 20070615
  Transmission Date: 20080115
  Serious: Yes (Life-Threatening, Hospitalization)
  Sender: FDA-Public Use
  Company Number: WAES 0706USA02854

PATIENT
  Age: 60 Year
  Sex: Female

DRUGS (1)
  1. VYTORIN [Suspect]
     Indication: HYPERCHOLESTEROLAEMIA
     Dosage: 10-20 MG DAILY; PO
     Route: 048
     Dates: start: 20070501, end: 20070101

REACTIONS (1)
  - RHABDOMYOLYSIS [None]
